FAERS Safety Report 21018142 (Version 1)
Quarter: 2022Q2

REPORT INFORMATION
  Report Type: Spontaneous
  Country: US (occurrence: None)
  Receive Date: 20220627
  Receipt Date: 20220627
  Transmission Date: 20220721
  Serious: Yes (Other)
  Sender: FDA-Public Use
  Company Number: None

PATIENT
  Sex: Female

DRUGS (4)
  1. LETROZOLE [Suspect]
     Active Substance: LETROZOLE
     Indication: Cervix carcinoma
     Dosage: TAKE 1 TABLET BY MOUTH EVERY DAY
     Route: 048
     Dates: start: 20150728
  2. DIOVAN [Concomitant]
     Active Substance: VALSARTAN
  3. FISH OIL [Concomitant]
  4. TRICOR [Concomitant]
     Active Substance: FENOFIBRATE

REACTIONS (1)
  - Intentional dose omission [None]
